FAERS Safety Report 23193450 (Version 2)
Quarter: 2023Q4

REPORT INFORMATION
  Report Type: Spontaneous
  Country: SI (occurrence: SI)
  Receive Date: 20231116
  Receipt Date: 20231124
  Transmission Date: 20240109
  Serious: Yes (Life-Threatening, Hospitalization)
  Sender: FDA-Public Use
  Company Number: SI-TEVA-2023-SI-2944549

PATIENT
  Age: 69 Year
  Sex: Female

DRUGS (10)
  1. RISPERIDONE [Suspect]
     Active Substance: RISPERIDONE
     Indication: Schizophrenia
     Dosage: DOSE WAS GRADUALLY TITRATED
     Route: 065
  2. RISPERIDONE [Suspect]
     Active Substance: RISPERIDONE
     Dosage: DOSE WAS FURTHER TITRATED
     Route: 065
  3. RISPERIDONE [Suspect]
     Active Substance: RISPERIDONE
     Dosage: 9 MILLIGRAM DAILY; ONCE A DAY
     Route: 065
  4. OLANZAPINE [Suspect]
     Active Substance: OLANZAPINE
     Indication: Schizophrenia
     Dosage: DOSE WAS SLOWLY TITRATED
     Route: 065
  5. OLANZAPINE [Suspect]
     Active Substance: OLANZAPINE
     Dosage: 20 MILLIGRAM DAILY; ONCE A DAY
     Route: 065
  6. QUETIAPINE [Suspect]
     Active Substance: QUETIAPINE
     Indication: Schizophrenia
     Dosage: 100 MILLIGRAM DAILY; ONCE A DAY
     Route: 065
  7. SALINE [Concomitant]
     Active Substance: SODIUM CHLORIDE
     Indication: Hypovolaemia
     Dosage: INFUSION
     Route: 065
  8. LORAZEPAM [Concomitant]
     Active Substance: LORAZEPAM
     Indication: Product used for unknown indication
     Dosage: 3 MILLIGRAM DAILY; ONCE A DAY
     Route: 065
  9. BIPERIDEN [Concomitant]
     Active Substance: BIPERIDEN
     Indication: Parkinsonism
     Dosage: 4 MILLIGRAM DAILY; 2 MG TWICE A DAY
     Route: 065
  10. BIPERIDEN [Concomitant]
     Active Substance: BIPERIDEN
     Dosage: 3 MILLIGRAM DAILY; ONCE A DAY
     Route: 065

REACTIONS (4)
  - Extrapyramidal disorder [Unknown]
  - Pulmonary embolism [Unknown]
  - Cardiac arrest [Recovered/Resolved]
  - Atrial fibrillation [Unknown]
